FAERS Safety Report 9230486 (Version 1)
Quarter: 2013Q2

REPORT INFORMATION
  Report Type: Spontaneous
  Country: VE (occurrence: VE)
  Receive Date: 20130415
  Receipt Date: 20130415
  Transmission Date: 20140414
  Serious: Yes (Other)
  Sender: FDA-Public Use
  Company Number: PHHY2011VE104536

PATIENT
  Age: 72 Year
  Sex: Female

DRUGS (6)
  1. ACLASTA [Suspect]
     Indication: OSTEOPOROSIS
     Dosage: 5 MG ONCE A YEAR
     Route: 042
     Dates: start: 20071209
  2. ACLASTA [Suspect]
     Dosage: 5 MG ONCE A YEAR
     Route: 042
     Dates: start: 20081220
  3. ACLASTA [Suspect]
     Dosage: 5 MG ONCE A YEAR
     Route: 042
     Dates: start: 20091222
  4. ACLASTA [Suspect]
     Dosage: 5 MG ONCE A YEAR
     Route: 042
     Dates: start: 20101223
  5. ACLASTA [Suspect]
     Dosage: 5 MG ONCE A YEAR
     Route: 042
     Dates: start: 201201
  6. ACLASTA [Suspect]
     Dosage: 5 MG ONCE A YEAR
     Route: 042
     Dates: start: 201302

REACTIONS (4)
  - Fall [Recovered/Resolved]
  - Osteopenia [Recovering/Resolving]
  - Joint injury [Recovered/Resolved]
  - Arthralgia [Recovered/Resolved]
